FAERS Safety Report 18050133 (Version 3)
Quarter: 2021Q1

REPORT INFORMATION
  Report Type: Other
  Country: AT (occurrence: AT)
  Receive Date: 20200721
  Receipt Date: 20210223
  Transmission Date: 20210419
  Serious: No
  Sender: FDA-Public Use
  Company Number: AT-ROCHE-2643670

PATIENT
  Age: 44 Year
  Sex: Female

DRUGS (31)
  1. SOLUDACORTIN [Concomitant]
     Route: 042
     Dates: start: 20200622, end: 20200622
  2. DIBONDRIN [Concomitant]
     Active Substance: DIPHENHYDRAMINE HYDROCHLORIDE
     Route: 042
     Dates: start: 20210111, end: 20210111
  3. VIROPEL [Concomitant]
     Route: 048
     Dates: start: 20200703, end: 20200706
  4. OCRELIZUMAB. [Suspect]
     Active Substance: OCRELIZUMAB
     Dosage: 600 MG/500 ML
     Route: 042
     Dates: start: 20191118
  5. SIMVASTATIN. [Concomitant]
     Active Substance: SIMVASTATIN
     Route: 048
     Dates: end: 20200603
  6. MYOCHOLINE [Concomitant]
     Active Substance: BETHANECHOL CHLORIDE
     Route: 048
  7. DIBONDRIN [Concomitant]
     Active Substance: DIPHENHYDRAMINE HYDROCHLORIDE
     Route: 042
     Dates: start: 20191118, end: 20191118
  8. PARACETAMOL [Concomitant]
     Active Substance: ACETAMINOPHEN
     Route: 048
     Dates: start: 20200622, end: 20200622
  9. PARACETAMOL [Concomitant]
     Active Substance: ACETAMINOPHEN
     Route: 048
     Dates: start: 20210111, end: 20210111
  10. AGLANDIN [Concomitant]
     Active Substance: TAMSULOSIN HYDROCHLORIDE
     Route: 048
  11. SOLUDACORTIN [Concomitant]
     Route: 042
     Dates: start: 20210111, end: 20210111
  12. DIBONDRIN [Concomitant]
     Active Substance: DIPHENHYDRAMINE HYDROCHLORIDE
     Indication: PREMEDICATION
     Route: 042
     Dates: start: 20190429, end: 20190429
  13. DIBONDRIN [Concomitant]
     Active Substance: DIPHENHYDRAMINE HYDROCHLORIDE
     Route: 042
     Dates: start: 20190513, end: 20190513
  14. PARACETAMOL [Concomitant]
     Active Substance: ACETAMINOPHEN
     Indication: PREMEDICATION
     Route: 048
     Dates: start: 20190429, end: 20190429
  15. LIORESAL [Concomitant]
     Active Substance: BACLOFEN
     Route: 048
     Dates: start: 20200924
  16. OCRELIZUMAB. [Suspect]
     Active Substance: OCRELIZUMAB
     Indication: PRIMARY PROGRESSIVE MULTIPLE SCLEROSIS
     Dosage: 300 MG/250 ML
     Route: 042
     Dates: start: 20190429
  17. OCRELIZUMAB. [Suspect]
     Active Substance: OCRELIZUMAB
     Dosage: 600 MG/500 ML
     Route: 042
     Dates: start: 20200622
  18. NOMEXOR [Concomitant]
     Active Substance: NEBIVOLOL HYDROCHLORIDE
     Route: 048
  19. VIROPEL [Concomitant]
     Route: 048
     Dates: start: 20200625, end: 20200702
  20. OCRELIZUMAB. [Suspect]
     Active Substance: OCRELIZUMAB
     Indication: PROGRESSIVE RELAPSING MULTIPLE SCLEROSIS
     Dosage: 300 MG/250 ML
     Route: 042
     Dates: start: 20190513
  21. ACIMED [Concomitant]
     Dosage: 1 CAPSULE
     Route: 048
  22. PARACETAMOL [Concomitant]
     Active Substance: ACETAMINOPHEN
     Route: 048
     Dates: start: 20190513, end: 20190513
  23. TEBOFORTAN [Concomitant]
     Active Substance: GINKGO
     Route: 048
     Dates: start: 20200603
  24. VIROPEL [Concomitant]
     Route: 048
     Dates: start: 20210104
  25. SOLUDACORTIN [Concomitant]
     Indication: PREMEDICATION
     Route: 042
     Dates: start: 20190429, end: 20190429
  26. SOLUDACORTIN [Concomitant]
     Route: 042
     Dates: start: 20190513, end: 20190513
  27. DIBONDRIN [Concomitant]
     Active Substance: DIPHENHYDRAMINE HYDROCHLORIDE
     Route: 042
     Dates: start: 20200622, end: 20200622
  28. VIROPEL [Concomitant]
     Route: 048
     Dates: start: 20200707, end: 20200806
  29. SOLUDACORTIN [Concomitant]
     Route: 042
     Dates: start: 20191118, end: 20191118
  30. PARACETAMOL [Concomitant]
     Active Substance: ACETAMINOPHEN
     Route: 048
     Dates: start: 20191118, end: 20191118
  31. MONURIL [Concomitant]
     Active Substance: FOSFOMYCIN TROMETHAMINE
     Route: 048
     Dates: start: 20190429

REACTIONS (1)
  - Genital herpes [Recovering/Resolving]

NARRATIVE: CASE EVENT DATE: 20200624
